FAERS Safety Report 9796400 (Version 1)
Quarter: 2014Q1

REPORT INFORMATION
  Report Type: Spontaneous
  Country: BR (occurrence: BR)
  Receive Date: 20140103
  Receipt Date: 20140103
  Transmission Date: 20141002
  Serious: Yes (Other)
  Sender: FDA-Public Use
  Company Number: BR-BRISTOL-MYERS SQUIBB COMPANY-19948777

PATIENT
  Age: 73 Year
  Sex: Male
  Weight: 77 kg

DRUGS (11)
  1. ONGLYZA TABS 5 MG [Suspect]
     Indication: DIABETES MELLITUS
  2. METFORMIN HCL [Suspect]
     Indication: DIABETES MELLITUS
  3. PANTOZOL [Concomitant]
  4. NORVASC [Concomitant]
  5. SELOZOK [Concomitant]
  6. PROCIMAX [Concomitant]
  7. ANCORON [Concomitant]
  8. NORIPURUM [Concomitant]
  9. LIPITOR [Concomitant]
     Indication: BLOOD CHOLESTEROL
  10. RIVOTRIL [Concomitant]
  11. ERYTHROPOIETIN [Concomitant]
     Dosage: INJECTION

REACTIONS (1)
  - Renal impairment [Unknown]
